FAERS Safety Report 17275836 (Version 1)
Quarter: 2020Q1

REPORT INFORMATION
  Report Type: Spontaneous
  Country: DE (occurrence: DE)
  Receive Date: 20200116
  Receipt Date: 20200116
  Transmission Date: 20200409
  Serious: Yes (Other)
  Sender: FDA-Public Use
  Company Number: DE-DRREDDYS-GER/GER/19/0109675

PATIENT
  Age: 59 Year
  Sex: Male
  Weight: 82 kg

DRUGS (9)
  1. LEVOFLOXACIN. [Suspect]
     Active Substance: LEVOFLOXACIN
     Dosage: UNK, QD (1/2 DOSAGE FORM, DAILY)
     Dates: end: 20180505
  2. LEVOFLOXACIN. [Suspect]
     Active Substance: LEVOFLOXACIN
     Indication: BACTERIAL INFECTION
     Dosage: 10TAGE/1 PRO TAG. HALBIERUNG DER DOSIS NACH DURCHF?LLEN (10DAYS/1 PER DAY. HALVING THE DOSE AFTER DI
     Route: 048
     Dates: start: 20180408, end: 201804
  3. MOXIFLOXACIN. [Suspect]
     Active Substance: MOXIFLOXACIN
     Indication: PRODUCT USED FOR UNKNOWN INDICATION
     Route: 048
     Dates: start: 20180408, end: 20180701
  4. PROSTAGUTT [Concomitant]
     Indication: ABDOMINAL PAIN UPPER
  5. CIPROFLOXACIN. [Suspect]
     Active Substance: CIPROFLOXACIN
     Indication: BACTERIAL INFECTION
  6. CIPROFLOXACIN. [Suspect]
     Active Substance: CIPROFLOXACIN
     Indication: PROSTATE INFECTION
     Route: 048
     Dates: start: 20180518, end: 201805
  7. LEVOFLOXACIN. [Suspect]
     Active Substance: LEVOFLOXACIN
     Indication: PROSTATITIS
     Dosage: 1 DF
  8. AMOXI-CLAVULAN [Concomitant]
     Indication: PROSTATE INFECTION
     Dates: start: 20180601, end: 201806
  9. AMOXI-CLAVULAN [Concomitant]
     Indication: BACTERIAL INFECTION

REACTIONS (25)
  - Benign prostatic hyperplasia [Unknown]
  - Diarrhoea [Recovered/Resolved]
  - Abdominal pain lower [Unknown]
  - Tendonitis [Recovering/Resolving]
  - Myalgia [Recovering/Resolving]
  - Joint effusion [Unknown]
  - Haematospermia [Not Recovered/Not Resolved]
  - Lacrimation increased [Not Recovered/Not Resolved]
  - Nocturia [Recovering/Resolving]
  - Tendon discomfort [Recovering/Resolving]
  - Oedema peripheral [Unknown]
  - Pain [Recovering/Resolving]
  - Arthralgia [Recovering/Resolving]
  - Joint swelling [Not Recovered/Not Resolved]
  - Musculoskeletal discomfort [Unknown]
  - Sexual dysfunction [Unknown]
  - Arthralgia [Recovering/Resolving]
  - Pruritus genital [Unknown]
  - Visual impairment [Not Recovered/Not Resolved]
  - Vision blurred [Not Recovered/Not Resolved]
  - Pain [Not Recovered/Not Resolved]
  - Arthralgia [Not Recovered/Not Resolved]
  - Arthritis [Not Recovered/Not Resolved]
  - Arthritis [Recovering/Resolving]
  - Pelvic pain [Unknown]

NARRATIVE: CASE EVENT DATE: 20180428
